FAERS Safety Report 10026944 (Version 2)
Quarter: 2014Q1

REPORT INFORMATION
  Report Type: Report from Study
  Country: CA (occurrence: CA)
  Receive Date: 20140321
  Receipt Date: 20140327
  Transmission Date: 20141002
  Serious: Yes (Hospitalization)
  Sender: FDA-Public Use
  Company Number: CA-SA-2014SA030345

PATIENT
  Age: 65 Year
  Sex: Male
  Weight: 52 kg

DRUGS (11)
  1. OXALIPLATIN [Suspect]
     Indication: ADENOCARCINOMA PANCREAS
     Dosage: EVERY 14 DAYS
     Route: 065
     Dates: start: 20140305, end: 20140305
  2. IRINOTECAN [Suspect]
     Indication: ADENOCARCINOMA PANCREAS
     Dosage: EVERY 14 DAYS
     Route: 065
     Dates: start: 20140305, end: 20140305
  3. FOLINIC ACID [Suspect]
     Indication: ADENOCARCINOMA PANCREAS
     Dosage: EVERY 14 DAYS
     Route: 042
     Dates: start: 20140305, end: 20140305
  4. 5-FU [Suspect]
     Indication: ADENOCARCINOMA PANCREAS
     Dosage: EVERY 14 DAYS DOSE:2.4 GRAM(S)/SQUARE METER
     Route: 042
     Dates: start: 20140305, end: 20140305
  5. ACETAMINOPHEN [Concomitant]
     Dosage: DOSE: 325-650 MG AS REQUIRED.
     Route: 048
     Dates: start: 20140306, end: 20140311
  6. GLICLAZIDE [Concomitant]
     Route: 048
     Dates: start: 20140306, end: 20140311
  7. METFORMIN [Concomitant]
     Route: 048
     Dates: start: 20140306, end: 20140311
  8. PANTOPRAZOLE [Concomitant]
     Route: 048
     Dates: start: 20140306, end: 20140311
  9. ROSUVASTATIN [Concomitant]
     Route: 048
     Dates: start: 20140306, end: 20140311
  10. SENNA [Concomitant]
     Dosage: PRN
     Route: 048
     Dates: start: 20140306, end: 20140311
  11. SYNTHROID [Concomitant]
     Route: 048
     Dates: start: 20140306, end: 20140311

REACTIONS (2)
  - Oesophageal spasm [Unknown]
  - Bacteraemia [Recovered/Resolved with Sequelae]
